FAERS Safety Report 6502471-3 (Version None)
Quarter: 2009Q4

REPORT INFORMATION
  Report Type: 
  Country: None (occurrence: None)
  Receive Date: 20091208
  Receipt Date: 20091124
  Transmission Date: 20100525
  Serious: Yes (Hospitalization)
  Sender: FDA-Public Use
  Company Number: B0610150A

PATIENT
  Age: 32 Year
  Sex: Male

DRUGS (4)
  1. LAMIVUDINE     (FORMULATION UNKNOWN) [Suspect]
     Indication: HIV INFECTION
     Dates: start: 20071101
  2. TENOFOVIR (FORMULATION UNKNOWN) [Suspect]
     Indication: HIV INFECTION
     Dates: start: 20071101
  3. EFAVIRENZ [Suspect]
     Indication: HIV INFECTION
     Dates: start: 20071101
  4. AMPHOTERICIN B [Concomitant]

REACTIONS (7)
  - COMA [None]
  - CONDITION AGGRAVATED [None]
  - CONFUSIONAL STATE [None]
  - CONVULSION [None]
  - CUTANEOUS LEISHMANIASIS [None]
  - IMMUNE RECONSTITUTION SYNDROME [None]
  - TOXOPLASMA SEROLOGY POSITIVE [None]
